FAERS Safety Report 5928915-3 (Version None)
Quarter: 2008Q4

REPORT INFORMATION
  Report Type: 
  Country: None (occurrence: None)
  Receive Date: 20081024
  Receipt Date: 20081017
  Transmission Date: 20090506
  Serious: Yes (Hospitalization)
  Sender: FDA-Public Use
  Company Number: PHHO2007SG12350

PATIENT
  Sex: Female
  Weight: 51.7 kg

DRUGS (2)
  1. ERL 080A ERL+TAB [Suspect]
     Indication: RENAL TRANSPLANT
     Dosage: 360 MG, BID
     Route: 048
     Dates: start: 20060312
  2. NEORAL [Concomitant]
     Indication: RENAL TRANSPLANT
     Dosage: 100 MG, BID
     Dates: start: 20070718

REACTIONS (4)
  - EPSTEIN-BARR VIRUS ANTIBODY POSITIVE [None]
  - HEADACHE [None]
  - INTRACRANIAL PRESSURE INCREASED [None]
  - PRIMITIVE NEUROECTODERMAL TUMOUR [None]
